FAERS Safety Report 25198786 (Version 1)
Quarter: 2025Q2

REPORT INFORMATION
  Report Type: Spontaneous
  Country: US (occurrence: US)
  Receive Date: 20250415
  Receipt Date: 20250415
  Transmission Date: 20250716
  Serious: Yes (Other)
  Sender: AUROBINDO
  Company Number: US-AUROBINDO-AUR-APL-2025-018963

PATIENT
  Age: 58 Year
  Sex: Female

DRUGS (5)
  1. VASOPRESSIN [Suspect]
     Active Substance: VASOPRESSIN
     Indication: Hypotension
     Route: 065
  2. CALCIUM CHLORIDE [Suspect]
     Active Substance: CALCIUM CHLORIDE
     Indication: Hypocalcaemia
     Route: 065
  3. DOBUTAMINE [Suspect]
     Active Substance: DOBUTAMINE HYDROCHLORIDE
     Indication: Hypotension
     Route: 065
  4. EPINEPHRINE [Suspect]
     Active Substance: EPINEPHRINE
     Indication: Hypotension
     Route: 065
  5. NOREPINEPHRINE [Suspect]
     Active Substance: NOREPINEPHRINE
     Indication: Hypotension
     Route: 065

REACTIONS (1)
  - Drug ineffective [Unknown]
